FAERS Safety Report 6964909-7 (Version None)
Quarter: 2010Q3

REPORT INFORMATION
  Report Type: 
  Country: None (occurrence: None)
  Receive Date: 20100903
  Receipt Date: 20100825
  Transmission Date: 20110219
  Serious: Yes (Hospitalization)
  Sender: FDA-Public Use
  Company Number: US-ELI_LILLY_AND_COMPANY-US201008007243

PATIENT
  Sex: Female
  Weight: 88.435 kg

DRUGS (3)
  1. BYETTA [Suspect]
     Indication: TYPE 2 DIABETES MELLITUS
     Dosage: 5 UG, 2/D
     Route: 058
  2. LEVOXYL [Concomitant]
     Dosage: UNK, DAILY (1/D)
  3. RAMIPRIL [Concomitant]
     Dosage: UNK, DAILY (1/D)

REACTIONS (4)
  - CHONDROPATHY [None]
  - FEELING COLD [None]
  - MUSCLE TWITCHING [None]
  - SCAR EXCISION [None]
